FAERS Safety Report 7057487 (Version 4)
Quarter: 2013Q3

REPORT INFORMATION
  Report Type: Spontaneous
  Country: US (occurrence: US)
  Receive Date: 20090722
  Receipt Date: 20130711
  Transmission Date: 20140515
  Serious: Yes (Hospitalization, Other)
  Sender: FDA-Public Use
  Company Number: US-BRISTOL-MYERS SQUIBB COMPANY-14316772

PATIENT
  Age: 64 Year
  Sex: Female
  Weight: 90.7 kg

DRUGS (1)
  1. COUMADIN [Suspect]
     Indication: ATRIAL FIBRILLATION
     Dosage: 9MG REDUCED TO 7MG,THEN TO 5MG FOR A WK,INCREASED TO 10MG.GENERIC(JANTOVEN)AT HOME,BRAND AT HOSPITAL
     Route: 048

REACTIONS (6)
  - Pneumonia [Unknown]
  - Anaemia [Unknown]
  - Haemorrhage [Unknown]
  - International normalised ratio fluctuation [Unknown]
  - Weight increased [Unknown]
  - International normalised ratio decreased [Unknown]
